FAERS Safety Report 25537878 (Version 2)
Quarter: 2025Q3

REPORT INFORMATION
  Report Type: Report from Study
  Country: CA (occurrence: CA)
  Receive Date: 20250710
  Receipt Date: 20250715
  Transmission Date: 20251021
  Serious: Yes (Disabling)
  Sender: NOVARTIS
  Company Number: CA-002147023-NVSC2025CA006654

PATIENT
  Age: 49 Year
  Sex: Female

DRUGS (2)
  1. KISQALI [Suspect]
     Active Substance: RIBOCICLIB SUCCINATE
     Indication: Breast cancer metastatic
     Route: 048
     Dates: start: 20250110
  2. KISQALI [Suspect]
     Active Substance: RIBOCICLIB SUCCINATE
     Dosage: 200 MG, DAILY FOR 21/28 DAYS, PATIENT CONTINUES TO TAKE KISQALI
     Route: 065

REACTIONS (9)
  - Asthenia [Not Recovered/Not Resolved]
  - Skin lesion [Recovering/Resolving]
  - Yawning [Unknown]
  - White blood cell count decreased [Unknown]
  - Pruritus [Unknown]
  - Acne [Unknown]
  - Fatigue [Unknown]
  - Incorrect dose administered [Unknown]
  - Inappropriate schedule of product administration [Unknown]
